FAERS Safety Report 10228116 (Version 1)
Quarter: 2014Q2

REPORT INFORMATION
  Report Type: Spontaneous
  Country: US (occurrence: US)
  Receive Date: 20140610
  Receipt Date: 20140610
  Transmission Date: 20141212
  Serious: Yes (Hospitalization)
  Sender: FDA-Public Use
  Company Number: US-WATSON-2014-12512

PATIENT
  Age: 17 Year
  Sex: Female

DRUGS (2)
  1. BUPROPION HYDROCHLORIDE (WATSON LABORATORIES) [Suspect]
     Indication: MAJOR DEPRESSION
     Dosage: APROXIMATIVELY 30 TABLETS
     Route: 048
  2. BUPROPION HYDROCHLORIDE (WATSON LABORATORIES) [Suspect]
     Dosage: 150 MG, UNK
     Route: 065

REACTIONS (9)
  - Convulsion [Recovered/Resolved]
  - Hypokalaemia [Recovered/Resolved]
  - Metabolic acidosis [Recovered/Resolved]
  - Hyperchloraemia [Recovered/Resolved]
  - Hypocalcaemia [Recovered/Resolved]
  - Hypoglycaemia [Recovered/Resolved]
  - Vomiting [Recovered/Resolved]
  - Suicide attempt [Recovered/Resolved]
  - Intentional overdose [Recovered/Resolved]
